FAERS Safety Report 13491055 (Version 1)
Quarter: 2017Q2

REPORT INFORMATION
  Report Type: Spontaneous
  Country: CH (occurrence: CH)
  Receive Date: 20170427
  Receipt Date: 20170427
  Transmission Date: 20170830
  Serious: Yes (Other)
  Sender: FDA-Public Use
  Company Number: CH-AMGEN-CHESP2017061604

PATIENT
  Age: 49 Year
  Sex: Female
  Weight: 49.3 kg

DRUGS (12)
  1. REMERON [Concomitant]
     Active Substance: MIRTAZAPINE
     Dosage: 30
  2. CALCIMAGON D3 [Concomitant]
     Active Substance: CALCIUM\CHOLECALCIFEROL
     Dosage: UNK
     Dates: start: 201602
  3. PREZISTA [Concomitant]
     Active Substance: DARUNAVIR ETHANOLATE
  4. ZIAGEN [Concomitant]
     Active Substance: ABACAVIR SULFATE
  5. PROLIA [Suspect]
     Active Substance: DENOSUMAB
     Indication: OSTEOPOROSIS
     Dosage: UNK
     Route: 058
     Dates: start: 201010, end: 201504
  6. NORVIR [Concomitant]
     Active Substance: RITONAVIR
     Dosage: 100 MG, UNK
  7. EMTRIVA [Concomitant]
     Active Substance: EMTRICITABINE
     Route: 048
  8. LYRICA [Concomitant]
     Active Substance: PREGABALIN
  9. OLANZAPIN [Concomitant]
     Active Substance: OLANZAPINE
  10. FORSTEO [Concomitant]
     Active Substance: TERIPARATIDE
     Dosage: UNK
     Dates: start: 201602
  11. TARGIN [Concomitant]
     Active Substance: NALOXONE HYDROCHLORIDE\OXYCODONE HYDROCHLORIDE
  12. TENOFOVIR [Concomitant]
     Active Substance: TENOFOVIR

REACTIONS (3)
  - Rebound effect [Recovering/Resolving]
  - Fractured sacrum [Recovered/Resolved with Sequelae]
  - Bone density decreased [Recovering/Resolving]

NARRATIVE: CASE EVENT DATE: 2016
